FAERS Safety Report 25016291 (Version 1)
Quarter: 2025Q1

REPORT INFORMATION
  Report Type: Spontaneous
  Country: CN (occurrence: CN)
  Receive Date: 20250227
  Receipt Date: 20250227
  Transmission Date: 20250408
  Serious: Yes (Hospitalization)
  Sender: ROCHE
  Company Number: CN-CHEPLA-2025002203

PATIENT
  Age: 76 Year
  Sex: Male
  Weight: 71 kg

DRUGS (3)
  1. BEVACIZUMAB [Suspect]
     Active Substance: BEVACIZUMAB
     Indication: Colon cancer
     Dosage: APPROVAL NO. GYZZ SJ20170035
     Route: 042
     Dates: start: 20250124, end: 20250124
  2. CAPECITABINE [Suspect]
     Active Substance: CAPECITABINE
     Indication: Colon cancer
     Dosage: APPROVAL NO. GYZZ H20073024. CAPECITABINE TABLETS 1G, TWICE A DAY, ORALLY
     Route: 048
     Dates: start: 20250124
  3. SODIUM CHLORIDE [Concomitant]
     Active Substance: SODIUM CHLORIDE
     Dosage: APPROVAL NO. GYZZ H12020025; AS SOLVENT
     Route: 042
     Dates: start: 20250124, end: 20250124

REACTIONS (1)
  - Myelosuppression [Recovering/Resolving]

NARRATIVE: CASE EVENT DATE: 20250214
